FAERS Safety Report 8506455-5 (Version None)
Quarter: 2012Q3

REPORT INFORMATION
  Report Type: 
  Country: None (occurrence: None)
  Receive Date: 20120712
  Receipt Date: 20120704
  Transmission Date: 20120928
  Serious: Yes (Hospitalization)
  Sender: FDA-Public Use
  Company Number: JP-ROCHE-577135

PATIENT
  Sex: Female
  Weight: 60.5 kg

DRUGS (20)
  1. DOCETAXEL [Suspect]
     Indication: BREAST CANCER
     Dosage: DRUG NAME: DOCETAXEL HYDRATE, DOSE FORM: 109 MG, LAST DOSE PRIOR TO SAE: 07 JAN 2009
     Route: 042
  2. ETIZOLAM [Concomitant]
  3. KETOPROFEN [Concomitant]
  4. ALPRAZOLAM [Concomitant]
     Dates: start: 20080711
  5. MAGNESIUM OXIDE [Concomitant]
  6. LAC-B [Concomitant]
  7. TRIAZOLAM [Concomitant]
  8. N-METHYLSCOPOLAMINE METHYLSULFATE [Concomitant]
     Dosage: DRUG REPORTED AS METYL SCOPOLAMINE METYLSULFATE
  9. ZOPICLONE [Concomitant]
     Dates: start: 20080902
  10. CYCLOPHOSPHAMIDE [Suspect]
     Dosage: LAST DOSE PRIOR TO SAE: 24 SEPT 2008
     Route: 042
  11. ZOLPIDEM [Concomitant]
  12. EPIRUBICIN HYDROCHLORIDE AND EPIRUBICIN HYDROCHLORIDE [Suspect]
     Dosage: LAST DOSE PRIOR TO SAE: 24 SEP 2008
     Route: 042
  13. HYALURONATE SODIUM [Concomitant]
  14. REBAMIPIDE [Concomitant]
     Dates: start: 20090113
  15. BETAMETHASONE [Concomitant]
     Dates: start: 20081021
  16. AVASTIN [Suspect]
     Indication: BREAST CANCER
     Dosage: DOSAGE FORM REPORTED AS 950 MG
     Route: 042
     Dates: start: 20080630, end: 20080630
  17. AVASTIN [Suspect]
     Dosage: LAST DOSE PRIOR TO SAE: 03 SEP 2008
     Route: 042
  18. EPIRUBICIN HYDROCHLORIDE [Suspect]
     Indication: BREAST CANCER
     Dosage: DOSAGE FORM REPORTED AS 143 MG
     Route: 042
     Dates: start: 20080630, end: 20080630
  19. CYCLOPHOSPHAMIDE [Suspect]
     Indication: BREAST CANCER
     Dosage: DOSAGE FORM REPORTED AS 955 MG
     Route: 042
     Dates: start: 20080630, end: 20080630
  20. TRIMEBUTINE [Concomitant]

REACTIONS (1)
  - DIVERTICULITIS INTESTINAL HAEMORRHAGIC [None]
